FAERS Safety Report 5343599-3 (Version None)
Quarter: 2007Q2

REPORT INFORMATION
  Report Type: 
  Country: None (occurrence: None)
  Receive Date: 20070531
  Receipt Date: 20070518
  Transmission Date: 20071010
  Serious: Yes (Congenital Anomaly)
  Sender: FDA-Public Use
  Company Number: B0472286A

PATIENT

DRUGS (3)
  1. CHLORPROMAZINE HCL [Suspect]
     Dosage: TRANSPLACENTARY
     Route: 064
  2. BROMAZEPAM                         (FORMULATION UNKNOWN) (GENERIC) [Suspect]
     Dosage: TRANSPLACENTARY
     Route: 064
  3. OXYPROPETHIN DECANOATE (FORMULATION UNKNOWN) (OXYPROPETHIN DECANOATE) [Suspect]
     Dosage: TRANSPLACENTARY
     Route: 064

REACTIONS (4)
  - CLEFT LIP [None]
  - DRUG EXPOSURE DURING PREGNANCY [None]
  - HEART DISEASE CONGENITAL [None]
  - KIDNEY MALFORMATION [None]
